FAERS Safety Report 9011675 (Version 1)
Quarter: 2013Q1

REPORT INFORMATION
  Report Type: Spontaneous
  Country: US (occurrence: US)
  Receive Date: 20130111
  Receipt Date: 20130111
  Transmission Date: 20140127
  Serious: Yes (Hospitalization, Other)
  Sender: FDA-Public Use
  Company Number: US-TEVA-379827USA

PATIENT
  Age: 72 Year
  Sex: Male
  Weight: 69 kg

DRUGS (6)
  1. TREANDA [Suspect]
     Indication: CHRONIC LYMPHOCYTIC LEUKAEMIA
     Dosage: 100MG/20ML
     Route: 042
     Dates: start: 20121126, end: 20121127
  2. TREANDA [Suspect]
     Dosage: 100MG/20ML
     Route: 042
     Dates: start: 20121227, end: 20121228
  3. ACYCLOVIR [Concomitant]
     Indication: PROPHYLAXIS
  4. CALCIUM VITAMIN D SUPPLEMENT [Concomitant]
  5. SOMANTADINE [Concomitant]
  6. FLUCONAZOLE [Concomitant]
     Indication: PROPHYLAXIS

REACTIONS (9)
  - Hypertension [Recovered/Resolved]
  - Nausea [Recovered/Resolved]
  - Vomiting [Recovered/Resolved]
  - Tachycardia [Recovered/Resolved]
  - Dyspnoea [Recovered/Resolved]
  - Wheezing [Recovered/Resolved]
  - Chest pain [Recovered/Resolved]
  - White blood cell count decreased [Recovered/Resolved]
  - Drug ineffective [Recovered/Resolved]
